FAERS Safety Report 7508463-X (Version None)
Quarter: 2011Q2

REPORT INFORMATION
  Report Type: 
  Country: None (occurrence: None)
  Receive Date: 20110527
  Receipt Date: 20110524
  Transmission Date: 20111010
  Serious: Yes (Other)
  Sender: FDA-Public Use
  Company Number: US-BAYER-2011-045390

PATIENT
  Age: 38 Year
  Sex: Female

DRUGS (2)
  1. DROSPIRENONE AND ETHINYL ESTRADIOL [Suspect]
     Dosage: UNK
     Dates: start: 20081208
  2. YASMIN [Suspect]
     Dosage: UNK
     Dates: start: 20020313, end: 20081208

REACTIONS (2)
  - CHOLECYSTECTOMY [None]
  - INJURY [None]
